FAERS Safety Report 23787088 (Version 2)
Quarter: 2024Q3

REPORT INFORMATION
  Report Type: Spontaneous
  Country: CA (occurrence: CA)
  Receive Date: 20240426
  Receipt Date: 20240703
  Transmission Date: 20241016
  Serious: Yes (Congenital Anomaly)
  Sender: BAXTER
  Company Number: CA-BAXTER-2024BAX017286

PATIENT

DRUGS (55)
  1. ACETAMINOPHEN [Suspect]
     Active Substance: ACETAMINOPHEN
     Indication: Product used for unknown indication
     Dosage: UNK
     Route: 064
  2. ACETAMINOPHEN [Suspect]
     Active Substance: ACETAMINOPHEN
     Dosage: (DOSAGE FORM: NOT SPECIFIED) AT AN UNSPECIFIED DOSE AND FREQUENCY
     Route: 064
  3. OXYCODONE AND ACETAMINOPHEN [Suspect]
     Active Substance: ACETAMINOPHEN\OXYCODONE HYDROCHLORIDE
     Indication: Product used for unknown indication
     Dosage: UNK
     Route: 064
  4. ACTEMRA [Suspect]
     Active Substance: TOCILIZUMAB
     Indication: Product used for unknown indication
     Dosage: (DOSAGE FORM: NOT SPECIFIED) 2912 MILLIGRAM AT AN UNSPECIFIED FREQUENCY
     Route: 064
  5. ACTEMRA [Suspect]
     Active Substance: TOCILIZUMAB
     Dosage: 752.8 MILLIGRAM AT AN UNSPECIFIED FREQUENCY
     Route: 064
  6. ACTEMRA [Suspect]
     Active Substance: TOCILIZUMAB
     Dosage: 3011 MILLIGRAM AT AN UNSPECIFIED FREQUENCY
     Route: 064
  7. ACTEMRA [Suspect]
     Active Substance: TOCILIZUMAB
     Dosage: UNK
     Route: 064
  8. ALENDRONATE SODIUM [Suspect]
     Active Substance: ALENDRONATE SODIUM
     Indication: Product used for unknown indication
     Dosage: UNK
     Route: 064
  9. ARAVA [Suspect]
     Active Substance: LEFLUNOMIDE
     Indication: Product used for unknown indication
     Dosage: 20 MILLIGRAM AT AN UNSPECIFIED FREQUENCY
     Route: 064
  10. CETIRIZINE HYDROCHLORIDE [Suspect]
     Active Substance: CETIRIZINE HYDROCHLORIDE
     Indication: Product used for unknown indication
     Dosage: 10 MILLIGRAM AT AN UNSPECIFIED FREQUENCY
     Route: 064
  11. CHLORHEXIDINE [Suspect]
     Active Substance: CHLORHEXIDINE
     Indication: Product used for unknown indication
     Dosage: UNK
     Route: 064
  12. CIMZIA [Suspect]
     Active Substance: CERTOLIZUMAB PEGOL
     Indication: Product used for unknown indication
     Dosage: UNK
     Route: 064
  13. DESOXIMETASONE [Suspect]
     Active Substance: DESOXIMETASONE
     Indication: Product used for unknown indication
     Dosage: (DOSAGE FORM: NOT SPECIFIED) 25 MILLIGRAM AT AN UNSPECIFIED FREQUENCY
     Route: 064
  14. DESOXIMETASONE [Suspect]
     Active Substance: DESOXIMETASONE
     Dosage: (DOSAGE FORM: NOT SPECIFIED) AT AN UNSPECIFIED DOSE AND FREQUENCY
     Route: 064
  15. DESOXIMETASONE [Suspect]
     Active Substance: DESOXIMETASONE
     Dosage: 25 MILLIGRAM AT AN UNSPECIFIED FREQUENCY
     Route: 064
  16. DICLOFENAC SODIUM [Suspect]
     Active Substance: DICLOFENAC\DICLOFENAC SODIUM
     Indication: Product used for unknown indication
     Dosage: UNK
     Route: 064
  17. DICLOFENAC SODIUM [Suspect]
     Active Substance: DICLOFENAC\DICLOFENAC SODIUM
     Dosage: (DOSAGE FORM: NOT SPECIFIED) AT AN UNSPECIFIED DOSE AND FREQUENCY
     Route: 064
  18. ENBREL [Suspect]
     Active Substance: BENZYL ALCOHOL\ETANERCEPT
     Indication: Product used for unknown indication
     Dosage: UNK
     Route: 064
  19. FOLIC ACID [Suspect]
     Active Substance: FOLIC ACID
     Indication: Product used for unknown indication
     Dosage: (DOSAGE FORM: NOT SPECIFIED) AT AN UNSPECIFIED DOSE AND FREQUENCY
     Route: 064
  20. HUMIRA [Suspect]
     Active Substance: ADALIMUMAB
     Indication: Product used for unknown indication
     Dosage: (DOSAGE FORM: SOLUTION SUBCUTANEOUS) 40 MILLIGRAM AT AN UNSPECIFIED FREQUENCY
     Route: 064
  21. HYDROXYCHLOROQUINE [Suspect]
     Active Substance: HYDROXYCHLOROQUINE
     Indication: Product used for unknown indication
     Dosage: 400 MILLIGRAM AT AN UNSPECIFIED FREQUENCY
     Route: 064
  22. LEFLUNOMIDE [Suspect]
     Active Substance: LEFLUNOMIDE
     Indication: Product used for unknown indication
     Dosage: (DOSAGE FORM: NOT SPECIFIED) AT AN UNSPECIFIED DOSE AND FREQUENCY
     Route: 064
  23. METHOTREXATE [Suspect]
     Active Substance: METHOTREXATE
     Indication: Product used for unknown indication
     Dosage: (DOSAGE FORM: NOT SPECIFIED) 20 MILLIGRAM AT AN UNSPECIFIED FREQUENCY
     Route: 064
  24. ORENCIA [Suspect]
     Active Substance: ABATACEPT
     Indication: Product used for unknown indication
     Dosage: 20 MILLIGRAM AT AN UNSPECIFIED FREQUENCY
     Route: 064
  25. ORENCIA [Suspect]
     Active Substance: ABATACEPT
     Dosage: UNK
     Route: 064
  26. OXYCODONE [Suspect]
     Active Substance: OXYCODONE
     Indication: Product used for unknown indication
     Dosage: UNK
     Route: 064
  27. PERIOGARD [Suspect]
     Active Substance: CHLORHEXIDINE GLUCONATE
     Indication: Product used for unknown indication
     Dosage: UNK
     Route: 064
  28. PREDNISONE [Suspect]
     Active Substance: PREDNISONE
     Indication: Product used for unknown indication
     Dosage: 7.5 MILLIGRAM AT AN UNSPECIFIED FREQUENCY
     Route: 064
  29. PREDNISONE [Suspect]
     Active Substance: PREDNISONE
     Dosage: (DOSAGE FORM: NOT SPECIFIED) AT AN UNSPECIFIED DOSE AND FREQUENCY
     Route: 064
  30. PREDNISONE [Suspect]
     Active Substance: PREDNISONE
     Dosage: (DOSAGE FORM: NOT SPECIFIED) 7.5 MILLIGRAM AT AN UNSPECIFIED FREQUENCY
     Route: 064
  31. PREDNISONE [Suspect]
     Active Substance: PREDNISONE
     Dosage: UNK
     Route: 064
  32. PSEUDOEPHEDRINE HYDROCHLORIDE [Suspect]
     Active Substance: PSEUDOEPHEDRINE HYDROCHLORIDE
     Indication: Product used for unknown indication
     Dosage: UNK
     Route: 064
  33. REMICADE [Suspect]
     Active Substance: INFLIXIMAB
     Indication: Product used for unknown indication
     Dosage: (DOSAGE FORM: POWDER FOR SOLUTION INTRAVENOUS) AT AN UNSPECIFIED DOSE AND FREQUENCY
     Route: 064
  34. RITUXIMAB [Suspect]
     Active Substance: RITUXIMAB
     Indication: Product used for unknown indication
     Dosage: UNK
     Route: 064
  35. SIMPONI [Suspect]
     Active Substance: GOLIMUMAB
     Indication: Product used for unknown indication
     Dosage: (DOSAGE FORM: SOLUTION SUBCUTANEOUS) AT AN UNSPECIFIED DOSE AND FREQUENCY
     Route: 064
  36. SULFAMETHOXAZOLE [Suspect]
     Active Substance: SULFAMETHOXAZOLE
     Indication: Product used for unknown indication
     Dosage: UNK
     Route: 064
  37. SULFAMETHOXAZOLE\TRIMETHOPRIM [Suspect]
     Active Substance: SULFAMETHOXAZOLE\TRIMETHOPRIM
     Indication: Product used for unknown indication
     Dosage: (DOSAGE FORM: NOT SPECIFIED) AT AN UNSPECIFIED DOSE AND FREQUENCY
     Route: 064
  38. SULFASALAZINE [Suspect]
     Active Substance: SULFASALAZINE
     Indication: Product used for unknown indication
     Dosage: 500 MILLIGRAM AT AN UNSPECIFIED FREQUENCY
     Route: 064
  39. SULFASALAZINE [Suspect]
     Active Substance: SULFASALAZINE
     Dosage: (DOSAGE FORM: NOT SPECIFIED) 2000 MILLIGRAM AT AN UNSPECIFIED FREQUENCY
     Route: 064
  40. SULFASALAZINE [Suspect]
     Active Substance: SULFASALAZINE
     Dosage: 2000 MILLIGRAM AT AN UNSPECIFIED FREQUENCY
     Route: 064
  41. SULFASALAZINE [Suspect]
     Active Substance: SULFASALAZINE
     Dosage: (DOSAGE FORM: NOT SPECIFIED) AT AN UNSPECIFIED DOSE AND FREQUENCY
     Route: 064
  42. XELJANZ [Suspect]
     Active Substance: TOFACITINIB CITRATE
     Indication: Product used for unknown indication
     Dosage: (DOSAGE FORM: NOT SPECIFIED) 10 MILLIGRAM AT AN UNSPECIFIED FREQUENCY
     Route: 064
  43. PREDNISONE [Suspect]
     Active Substance: PREDNISONE
     Indication: Product used for unknown indication
     Dosage: UNK
     Route: 064
  44. HYDROXYCHLOROQUINE SULFATE [Suspect]
     Active Substance: HYDROXYCHLOROQUINE SULFATE
     Indication: Product used for unknown indication
     Dosage: UNK
     Route: 064
  45. HYDROXYCHLOROQUINE SULFATE [Suspect]
     Active Substance: HYDROXYCHLOROQUINE SULFATE
     Dosage: 400 MILLIGRAM AT AN UNSPECIFIED FREQUENCY
     Route: 064
  46. METHOTREXATE SODIUM [Suspect]
     Active Substance: METHOTREXATE SODIUM
     Indication: Product used for unknown indication
     Dosage: 20 MILLIGRAM AT AN UNSPECIFIED FREQUENCY
     Route: 064
  47. OXYCODONE TEREPHTHALATE [Suspect]
     Active Substance: OXYCODONE TEREPHTHALATE
     Indication: Product used for unknown indication
     Dosage: (DOSAGE FORM: NOT SPECIFIED) AT AN UNSPECIFIED DOSE AND FREQUENCY
     Route: 064
  48. ACETAMINOPHEN\CODEINE PHOSPHATE [Concomitant]
     Active Substance: ACETAMINOPHEN\CODEINE PHOSPHATE
     Indication: Product used for unknown indication
     Dosage: UNK
     Route: 064
  49. DESOGESTREL\ETHINYL ESTRADIOL [Concomitant]
     Active Substance: DESOGESTREL\ETHINYL ESTRADIOL
     Indication: Product used for unknown indication
     Dosage: UNK
     Route: 064
  50. DIPHENHYDRAMINE HYDROCHLORIDE [Concomitant]
     Active Substance: DIPHENHYDRAMINE HYDROCHLORIDE
     Indication: Product used for unknown indication
     Dosage: UNK
     Route: 064
  51. IBUPROFEN [Concomitant]
     Active Substance: IBUPROFEN
     Indication: Product used for unknown indication
     Dosage: (DOSAGE FORM: NOT SPECIFIED) AT AN UNSPECIFIED DOSE AND FREQUENCY
     Route: 064
  52. PANTOPRAZOLE [Concomitant]
     Active Substance: PANTOPRAZOLE
     Indication: Product used for unknown indication
     Dosage: (DOSAGE FORM: NOT SPECIFIED) AT AN UNSPECIFIED DOSE AND FREQUENCY
     Route: 064
  53. PANTOPRAZOLE SODIUM [Concomitant]
     Active Substance: PANTOPRAZOLE SODIUM
     Indication: Product used for unknown indication
     Dosage: UNK
     Route: 064
  54. PANTOPRAZOLE SODIUM [Concomitant]
     Active Substance: PANTOPRAZOLE SODIUM
     Route: 064
  55. SULFASALAZINE [Concomitant]
     Active Substance: SULFASALAZINE
     Indication: Product used for unknown indication
     Dosage: (DOSAGE FORM: NOT SPECIFIED) AT AN UNSPECIFIED DOSE AND FREQUENCY
     Route: 064

REACTIONS (2)
  - Congenital anomaly [Not Recovered/Not Resolved]
  - Foetal exposure during pregnancy [Not Recovered/Not Resolved]
